FAERS Safety Report 17284346 (Version 5)
Quarter: 2020Q3

REPORT INFORMATION
  Report Type: Spontaneous
  Country: JP (occurrence: JP)
  Receive Date: 20200117
  Receipt Date: 20200720
  Transmission Date: 20201102
  Serious: Yes (Death, Disabling)
  Sender: FDA-Public Use
  Company Number: JP-UCBSA-2020002180

PATIENT
  Age: 44 Year
  Sex: Female

DRUGS (9)
  1. E KEPPRA [Suspect]
     Active Substance: LEVETIRACETAM
     Indication: EPILEPSY
     Dosage: UNK
     Route: 048
     Dates: start: 20191214, end: 201912
  2. ACELIO [Concomitant]
     Active Substance: ACETAMINOPHEN
     Indication: PRODUCT USED FOR UNKNOWN INDICATION
     Dosage: 2000MG DAILY
     Route: 041
     Dates: start: 20200108, end: 20200119
  3. RINDERON [BETAMETHASONE SODIUM PHOSPHATE] [Concomitant]
     Active Substance: BETAMETHASONE SODIUM PHOSPHATE
     Indication: PRODUCT USED FOR UNKNOWN INDICATION
     Dosage: 2MG ONCE DAILY
     Dates: start: 20191224, end: 20200119
  4. GASTER [Concomitant]
     Active Substance: FAMOTIDINE
     Indication: PRODUCT USED FOR UNKNOWN INDICATION
     Dosage: 10MG DAILY
     Route: 041
     Dates: start: 20191224, end: 20200119
  5. MORPHINE HYDROCHLORIDE [Concomitant]
     Active Substance: MORPHINE HYDROCHLORIDE
     Indication: PRODUCT USED FOR UNKNOWN INDICATION
     Dosage: 3264MG DAILY
     Route: 041
     Dates: start: 20191224, end: 20200119
  6. E KEPPRA [Suspect]
     Active Substance: LEVETIRACETAM
     Dosage: 3000MG DAILY
     Route: 048
     Dates: start: 20191224
  7. ACELIO [Concomitant]
     Active Substance: ACETAMINOPHEN
     Dates: start: 20200108, end: 20200119
  8. E KEPPRA [Suspect]
     Active Substance: LEVETIRACETAM
     Indication: EPILEPSY
     Dosage: 3000MG DAILY
     Route: 041
     Dates: start: 20200108, end: 20200119
  9. E KEPPRA [Suspect]
     Active Substance: LEVETIRACETAM
     Indication: SEIZURE

REACTIONS (2)
  - Depressed level of consciousness [Not Recovered/Not Resolved]
  - Breast cancer metastatic [Fatal]

NARRATIVE: CASE EVENT DATE: 20200108
